FAERS Safety Report 12015106 (Version 1)
Quarter: 2016Q1

REPORT INFORMATION
  Report Type: Spontaneous
  Country: US (occurrence: US)
  Receive Date: 20160205
  Receipt Date: 20160205
  Transmission Date: 20160526
  Serious: No
  Sender: FDA-Public Use
  Company Number: US-AMGEN-USASP2015017711

PATIENT

DRUGS (3)
  1. TREANDA [Concomitant]
     Active Substance: BENDAMUSTINE HYDROCHLORIDE
     Dosage: UNK
     Dates: start: 201404
  2. NEULASTA [Suspect]
     Active Substance: PEGFILGRASTIM
     Indication: PRODUCT USED FOR UNKNOWN INDICATION
     Dosage: UNK
     Route: 065
  3. RITUXAN [Concomitant]
     Active Substance: RITUXIMAB
     Dosage: UNK
     Dates: start: 201404

REACTIONS (8)
  - Bite [Unknown]
  - Pruritus [Unknown]
  - Dyspnoea [Unknown]
  - Hot flush [Unknown]
  - Pain [Unknown]
  - Weight increased [Unknown]
  - Bone pain [Unknown]
  - Myalgia [Unknown]
